FAERS Safety Report 6569785-2 (Version None)
Quarter: 2010Q1

REPORT INFORMATION
  Report Type: 
  Country: None (occurrence: None)
  Receive Date: 20100204
  Receipt Date: 20100125
  Transmission Date: 20100710
  Serious: Yes (Hospitalization, Other)
  Sender: FDA-Public Use
  Company Number: US-ELI_LILLY_AND_COMPANY-US201001005091

PATIENT
  Sex: Male

DRUGS (7)
  1. HUMALOG [Suspect]
     Indication: TYPE 2 DIABETES MELLITUS
     Dosage: 20 U, EACH MORNING
     Dates: start: 20091001
  2. HUMALOG [Suspect]
     Dosage: 14 U, OTHER
     Dates: start: 20091001
  3. HUMALOG [Suspect]
     Dosage: 20 U, EACH EVENING
     Dates: start: 20091001
  4. HUMALOG [Suspect]
     Dosage: 20 U, EACH MORNING
     Dates: start: 20091001
  5. HUMALOG [Suspect]
     Dosage: 14 U, OTHER
     Dates: start: 20091001
  6. HUMALOG [Suspect]
     Dosage: 20 U, EACH EVENING
     Dates: start: 20091001
  7. LANTUS [Concomitant]

REACTIONS (4)
  - BLOOD GLUCOSE INCREASED [None]
  - CARDIAC DISORDER [None]
  - CARDIAC FAILURE CONGESTIVE [None]
  - RENAL DISORDER [None]
